FAERS Safety Report 10744092 (Version 1)
Quarter: 2015Q1

REPORT INFORMATION
  Report Type: Spontaneous
  Country: US (occurrence: None)
  Receive Date: 20150126
  Receipt Date: 20150126
  Transmission Date: 20150721
  Serious: Yes (Death, Hospitalization)
  Sender: FDA-Public Use
  Company Number: None

PATIENT
  Age: 10 Year
  Sex: Female
  Weight: 48 kg

DRUGS (9)
  1. G-CSF [Concomitant]
     Active Substance: GRANULOCYTE COLONY-STIMULATING FACTOR NOS
  2. INTRATHECIAL MTX-HC-ARAC [Concomitant]
  3. LEUCOVORIN [Concomitant]
     Active Substance: LEUCOVORIN
  4. METHOTREXATE [Suspect]
     Active Substance: METHOTREXATE
     Dates: end: 20140406
  5. DOXORUBICIN [Concomitant]
     Active Substance: DOXORUBICIN
  6. RITUXIMAB [Concomitant]
     Active Substance: RITUXIMAB
  7. CYCLOPHOSPHAMIDE. [Suspect]
     Active Substance: CYCLOPHOSPHAMIDE
     Dates: end: 20140410
  8. PREDNISONE. [Suspect]
     Active Substance: PREDNISONE
     Dates: end: 20140408
  9. VINCRISTINE SULFATE. [Suspect]
     Active Substance: VINCRISTINE SULFATE
     Dates: end: 20140406

REACTIONS (7)
  - Nuclear magnetic resonance imaging brain abnormal [None]
  - Multi-organ failure [None]
  - Intra-abdominal pressure increased [None]
  - Acidosis [None]
  - Gastrointestinal necrosis [None]
  - Respiratory distress [None]
  - Mental status changes [None]

NARRATIVE: CASE EVENT DATE: 20140410
